FAERS Safety Report 8998494 (Version 2)
Quarter: 2013Q1

REPORT INFORMATION
  Report Type: Report from Study
  Country: US (occurrence: US)
  Receive Date: 20130103
  Receipt Date: 20130115
  Transmission Date: 20140127
  Serious: Yes (Death)
  Sender: FDA-Public Use
  Company Number: US-ACTELION-A-NJ2012-76994

PATIENT
  Age: 46 Year
  Sex: Female

DRUGS (4)
  1. VELETRI [Suspect]
     Indication: PULMONARY ARTERIAL HYPERTENSION
     Dosage: 50 NG/KG, PER MIN
     Route: 041
     Dates: start: 201006, end: 20121222
  2. TRACLEER [Concomitant]
     Indication: PULMONARY ARTERIAL HYPERTENSION
     Dosage: 125 MG, BID
     Route: 048
     Dates: start: 201201, end: 201209
  3. TRACLEER [Concomitant]
     Dosage: 62.5 MG, BID
     Route: 048
     Dates: start: 201112, end: 201201
  4. LETAIRIS [Concomitant]

REACTIONS (1)
  - Pulmonary arterial hypertension [Fatal]
